FAERS Safety Report 7155832-6 (Version None)
Quarter: 2010Q4

REPORT INFORMATION
  Report Type: 
  Country: None (occurrence: None)
  Receive Date: 20101129
  Receipt Date: 20101115
  Transmission Date: 20110411
  Serious: Yes (Congenital Anomaly, Other)
  Sender: FDA-Public Use
  Company Number: GB-ACCORD-006716

PATIENT
  Sex: Female
  Weight: 3 kg

DRUGS (2)
  1. LAMOTRIGINE [Suspect]
     Dosage: 400.00-MG-4.00PER-1.0DAYS / TRANSPLACENTAL
     Route: 064
  2. TOPIRAMATE [Suspect]
     Dosage: 400.00-MG-4.00PER-1.0DAYS / TRANSPLACENTAL
     Route: 064

REACTIONS (3)
  - HIP DYSPLASIA [None]
  - MATERNAL DRUGS AFFECTING FOETUS [None]
  - POSTMATURE BABY [None]
